FAERS Safety Report 5976050-0 (Version None)
Quarter: 2008Q4

REPORT INFORMATION
  Report Type: 
  Country: None (occurrence: None)
  Receive Date: 20081202
  Receipt Date: 20081118
  Transmission Date: 20090506
  Serious: Yes (Disabling)
  Sender: FDA-Public Use
  Company Number: US-ROCHE-594923

PATIENT
  Sex: Female

DRUGS (13)
  1. BONIVA [Suspect]
     Indication: OSTEOPENIA
     Dosage: STRENGTH: 3MG/3ML
     Route: 042
     Dates: start: 20081021
  2. ABILIFY [Concomitant]
     Dosage: AT AM
     Route: 048
  3. WELLBUTRIN SR [Concomitant]
     Dosage: AT AM
     Route: 048
  4. LAMICTAL [Concomitant]
     Dosage: AT AM
     Route: 048
  5. LASIX [Concomitant]
     Dosage: AT AM
     Route: 048
  6. POTASSIUM CHLORIDE [Concomitant]
     Dosage: DRUG REPORTED AS POTASSIUM CHLORIDE AT AM
     Route: 048
  7. MOBIC [Concomitant]
     Route: 048
  8. SIBICORT [Concomitant]
     Dosage: DRUG: SYBICORT STRENGTH: 150/4.5 AS NEEDED
  9. SPIRIVA [Concomitant]
     Dosage: PUFF
  10. KLONOPIN [Concomitant]
     Dosage: AT NIGHT
     Route: 048
  11. SEROQUEL [Concomitant]
     Dosage: AT NIGHT
  12. ZANAFLEX [Concomitant]
     Dosage: S NEEDED
     Route: 048
  13. NEURONTIN [Concomitant]
     Dosage: AS NEEDED
     Route: 048

REACTIONS (5)
  - ABDOMINAL DISCOMFORT [None]
  - ANGIOSCLEROSIS [None]
  - CELLULITIS [None]
  - INJECTION SITE INFLAMMATION [None]
  - INJECTION SITE NERVE DAMAGE [None]
